FAERS Safety Report 7767154-0 (Version None)
Quarter: 2011Q3

REPORT INFORMATION
  Report Type: 
  Country: None (occurrence: None)
  Receive Date: 20110922
  Receipt Date: 20110202
  Transmission Date: 20111222
  Serious: No
  Sender: FDA-Public Use
  Company Number: US-ASTRAZENECA-2011SE05746

PATIENT
  Age: 43 Year
  Sex: Male
  Weight: 99.8 kg

DRUGS (8)
  1. KLONOPIN [Concomitant]
  2. ATENOLOL [Concomitant]
     Indication: HYPERTENSION
  3. WELLBUTRIN [Concomitant]
  4. COLCHICINE [Concomitant]
     Indication: GOUT
  5. SEROQUEL [Suspect]
     Indication: BIPOLAR DISORDER
     Dosage: EITHER ONCE OR TWICE DAILY
     Route: 048
     Dates: start: 20030101, end: 20110101
  6. DEPAKOTE [Concomitant]
  7. TEMAZEPAM [Concomitant]
  8. CLONIDINE [Concomitant]
     Indication: HYPERTENSION

REACTIONS (3)
  - DEPRESSION [None]
  - BIPOLAR DISORDER [None]
  - DRUG DOSE OMISSION [None]
